FAERS Safety Report 7910499-1 (Version None)
Quarter: 2011Q4

REPORT INFORMATION
  Report Type: 
  Country: None (occurrence: None)
  Receive Date: 20111111
  Receipt Date: 20111102
  Transmission Date: 20120403
  Serious: Yes (Other)
  Sender: FDA-Public Use
  Company Number: PHFR2011GB05965

PATIENT
  Sex: Male

DRUGS (2)
  1. CLOZARIL [Suspect]
     Indication: PSYCHOTIC DISORDER
     Dosage: 12.5 MG
     Route: 048
     Dates: start: 20111017
  2. CLOZARIL [Suspect]
     Dosage: 25 MG, UNK
     Route: 048

REACTIONS (7)
  - SOMNOLENCE [None]
  - SEDATION [None]
  - EYE DISORDER [None]
  - HEADACHE [None]
  - GAIT DISTURBANCE [None]
  - FEELING ABNORMAL [None]
  - MUSCULOSKELETAL STIFFNESS [None]
